FAERS Safety Report 5410265-5 (Version None)
Quarter: 2007Q3

REPORT INFORMATION
  Report Type: 
  Country: None (occurrence: None)
  Receive Date: 20070808
  Receipt Date: 20070731
  Transmission Date: 20080115
  Serious: Yes (Death, Hospitalization, Other)
  Sender: FDA-Public Use
  Company Number: 17129

PATIENT
  Age: 70 Year
  Sex: Female

DRUGS (3)
  1. CARBOPLATIN [Suspect]
     Indication: BRONCHIOLOALVEOLAR CARCINOMA
  2. PACLITAXEL [Suspect]
     Indication: BRONCHIOLOALVEOLAR CARCINOMA
  3. ERLOTINIB [Suspect]
     Indication: BRONCHIOLOALVEOLAR CARCINOMA

REACTIONS (4)
  - DRUG INTERACTION [None]
  - DYSPNOEA [None]
  - INTERSTITIAL LUNG DISEASE [None]
  - PYREXIA [None]
